FAERS Safety Report 5374735-0 (Version None)
Quarter: 2007Q2

REPORT INFORMATION
  Report Type: 
  Country: None (occurrence: None)
  Receive Date: 20070629
  Receipt Date: 20070621
  Transmission Date: 20071010
  Serious: Yes (Hospitalization)
  Sender: FDA-Public Use
  Company Number: PHHO2007US10490

PATIENT
  Age: 68 Year
  Sex: Female
  Weight: 77.7 kg

DRUGS (9)
  1. LOTREL [Suspect]
     Indication: HYPERTENSION
     Dosage: UNK, LEVEL 3
     Route: 048
     Dates: start: 20060227, end: 20070517
  2. LOTREL [Suspect]
     Dosage: LEVEL 1
     Route: 048
     Dates: start: 20040109, end: 20040211
  3. LOTREL [Suspect]
     Dosage: LEVEL 2
     Route: 048
     Dates: start: 20040212, end: 20040317
  4. LOTREL [Suspect]
     Dosage: UNK, LEVEL 3
     Route: 048
     Dates: start: 20040318, end: 20041227
  5. LOTREL [Suspect]
     Dosage: UNK, NO TREATMENT
     Dates: start: 20041228, end: 20050101
  6. LOTREL [Suspect]
     Dosage: UNK, LEVEL 3
     Route: 048
     Dates: start: 20050102, end: 20060222
  7. LOTREL [Suspect]
     Dosage: UNK, NO TREATMENT
     Dates: start: 20060223, end: 20060226
  8. LABETALOL HCL [Concomitant]
     Dosage: 300 MG, BID
     Dates: start: 20070210
  9. LASIX [Concomitant]

REACTIONS (10)
  - CARDIAC FAILURE CONGESTIVE [None]
  - CONCOMITANT DISEASE PROGRESSION [None]
  - DIABETIC NEPHROPATHY [None]
  - DYSPNOEA [None]
  - DYSPNOEA EXERTIONAL [None]
  - FLUID OVERLOAD [None]
  - OEDEMA [None]
  - ORTHOPNOEA [None]
  - PROTEINURIA [None]
  - RENAL FAILURE [None]
